FAERS Safety Report 8068309-0 (Version None)
Quarter: 2012Q1

REPORT INFORMATION
  Report Type: 
  Country: None (occurrence: None)
  Receive Date: 20120124
  Receipt Date: 20111014
  Transmission Date: 20120608
  Serious: No
  Sender: FDA-Public Use
  Company Number: US-AMGEN-USASP2011053420

PATIENT
  Age: 83 Year
  Sex: Female

DRUGS (12)
  1. MECLIZINE [Concomitant]
     Dosage: 12.5 UNK, BID
  2. PROLIA [Suspect]
     Indication: OSTEOPOROSIS POSTMENOPAUSAL
     Dosage: 60 MG, Q6MO
     Dates: start: 20110301
  3. FUROSEMIDE [Concomitant]
  4. ULTRACET [Concomitant]
  5. VITAMIN B COMPLEX CAP [Concomitant]
  6. ASCORBIC ACID [Concomitant]
  7. VITAMIN D [Concomitant]
  8. MECLIZINE [Concomitant]
     Dosage: 25 MG, BID
  9. MECLIZINE [Concomitant]
     Dosage: 6.3 UNK, BID
  10. SYNTHROID [Concomitant]
     Dosage: 1 UNK, QD
  11. NEURONTIN [Concomitant]
  12. CALCIUM WITH VITAMIN D [Concomitant]

REACTIONS (1)
  - PRURITUS [None]
